FAERS Safety Report 8175786-3 (Version None)
Quarter: 2012Q1

REPORT INFORMATION
  Report Type: 
  Country: None (occurrence: None)
  Receive Date: 20120228
  Receipt Date: 20120217
  Transmission Date: 20120608
  Serious: Yes (Other)
  Sender: FDA-Public Use
  Company Number: 2012AP000433

PATIENT
  Age: 55 Year
  Sex: Male

DRUGS (6)
  1. METOPROLOL TARTRATE [Concomitant]
  2. ENALAPRIL MALEATE [Suspect]
     Indication: HYPERTENSION
     Dosage: 10 MG;QD;
  3. CLONAZEPAM [Concomitant]
  4. AMLODIPINE [Concomitant]
  5. OMEPRAZOLE [Concomitant]
  6. ESCITALOPRAM [Concomitant]

REACTIONS (3)
  - ANGIOEDEMA [None]
  - TOOTH ABSCESS [None]
  - PERIODONTAL DISEASE [None]
